FAERS Safety Report 25028907 (Version 3)
Quarter: 2025Q2

REPORT INFORMATION
  Report Type: Report from Study
  Country: US (occurrence: US)
  Receive Date: 20250302
  Receipt Date: 20250408
  Transmission Date: 20250716
  Serious: No
  Sender: SANOFI AVENTIS
  Company Number: US-SA-2025SA060180

PATIENT
  Age: 53 Year
  Sex: Male

DRUGS (1)
  1. VANDETANIB [Suspect]
     Active Substance: VANDETANIB

REACTIONS (1)
  - Disease progression [Unknown]
